FAERS Safety Report 9364616 (Version 1)
Quarter: 2013Q2

REPORT INFORMATION
  Report Type: Spontaneous
  Country: FR (occurrence: FR)
  Receive Date: 20130624
  Receipt Date: 20130624
  Transmission Date: 20140414
  Serious: Yes (Death, Hospitalization)
  Sender: FDA-Public Use
  Company Number: FR-CUBIST PHARMACEUTICALS, INC.-2013CBST000509

PATIENT
  Sex: 0

DRUGS (4)
  1. CUBICIN [Suspect]
     Indication: SEPSIS
     Dosage: 440 MG, QD
     Route: 042
     Dates: start: 20110418, end: 20110418
  2. CUBICIN [Suspect]
     Indication: OFF LABEL USE
  3. GENTAMICIN [Suspect]
     Indication: SEPSIS
     Dosage: 220 MG, QD
     Route: 042
     Dates: start: 20110418, end: 20110418
  4. GENTAMICIN [Suspect]
     Indication: OFF LABEL USE
     Dosage: 165 MG, UNK BOLUS OVER 30 MIN
     Route: 065
     Dates: start: 20110415

REACTIONS (5)
  - Tachypnoea [Unknown]
  - Pyrexia [Unknown]
  - Urticaria [Recovered/Resolved]
  - Tachycardia [Unknown]
  - Hypotension [Recovered/Resolved]
